FAERS Safety Report 9624878 (Version 4)
Quarter: 2014Q2

REPORT INFORMATION
  Report Type: Spontaneous
  Country: US (occurrence: US)
  Receive Date: 20131016
  Receipt Date: 20140529
  Transmission Date: 20141212
  Serious: Yes (Death, Other)
  Sender: FDA-Public Use
  Company Number: US-AMGEN-USASP2013070709

PATIENT
  Age: 88 Year
  Sex: Female

DRUGS (17)
  1. PROLIA [Suspect]
     Indication: OSTEOPOROSIS POSTMENOPAUSAL
     Dosage: UNK UNK, Q6MO
     Route: 058
     Dates: start: 201305
  2. CENTRUM SILVER                     /02363801/ [Concomitant]
     Dosage: UNK UNK, QD
     Route: 048
  3. COLACE [Concomitant]
     Dosage: UNK UNK, QD
     Route: 048
  4. DIOVAN [Concomitant]
     Dosage: 160 MG, QD
     Route: 048
  5. MIRALAX                            /00754501/ [Concomitant]
     Dosage: 17 G, QD
     Route: 048
  6. PLAVIX [Concomitant]
     Dosage: 75 MG, QD
     Route: 048
  7. TOPROL [Concomitant]
     Dosage: 50 MG, QD
     Route: 048
  8. TUMS                               /00193601/ [Concomitant]
     Dosage: 300 MG, QD
     Route: 048
  9. TYLENOL                            /00020001/ [Concomitant]
     Dosage: 500 MG, QD
     Route: 048
  10. VICKS VAPORUB                      /00055801/ [Concomitant]
     Dosage: UNK UNK, QD
     Route: 061
  11. VITAMIN D3 [Concomitant]
     Dosage: 5000 IU, UNK
  12. ZENPEP [Concomitant]
     Dosage: UNK UNK, TID
     Route: 048
  13. FERROUS SULFATE [Concomitant]
     Dosage: 325 MG, QD
     Route: 048
     Dates: start: 20121227
  14. FOLIC ACID [Concomitant]
     Dosage: 1 MG, QD
     Dates: start: 20130502, end: 20130502
  15. ARICEPT [Concomitant]
     Dosage: 10 MG, QD
     Route: 048
  16. ALPRAZOLAM [Concomitant]
     Dosage: 0.5 MG, BID
     Route: 048
     Dates: start: 20131007
  17. INFLUENZA VACCINE [Concomitant]
     Dosage: UNK
     Dates: start: 20130917

REACTIONS (11)
  - Death [Fatal]
  - Dementia [Unknown]
  - Blood sodium decreased [Unknown]
  - Confusional state [Unknown]
  - Incoherent [Unknown]
  - Anxiety [Unknown]
  - Hypokalaemia [Unknown]
  - Overweight [Unknown]
  - Malaise [Unknown]
  - Sleep disorder [Unknown]
  - Fatigue [Unknown]
